FAERS Safety Report 7757498-0 (Version None)
Quarter: 2011Q3

REPORT INFORMATION
  Report Type: 
  Country: None (occurrence: None)
  Receive Date: 20110916
  Receipt Date: 20110914
  Transmission Date: 20111222
  Serious: Yes (Hospitalization)
  Sender: FDA-Public Use
  Company Number: BR-ABBOTT-10P-020-0686190-00

PATIENT
  Sex: Female
  Weight: 37 kg

DRUGS (5)
  1. CORTICORTEN [Concomitant]
     Indication: RHEUMATOID ARTHRITIS
  2. HUMIRA [Suspect]
     Indication: RHEUMATOID ARTHRITIS
     Route: 058
     Dates: start: 20050324, end: 20100801
  3. UNKNOWN COMBINED FORMULA [Concomitant]
     Indication: PRODUCT USED FOR UNKNOWN INDICATION
  4. COMBINED: AMITRIPTYLINE, FOLIC ACID, PREDNISONE, AND RANITIDINE [Concomitant]
     Indication: RHEUMATOID ARTHRITIS
     Dosage: 12. 5MG, 0.5MG, 2.5MG, 150MG, 2 IN 24 HR
     Route: 048
     Dates: start: 20050101
  5. METHOTREXATE [Concomitant]
     Indication: PRODUCT USED FOR UNKNOWN INDICATION

REACTIONS (5)
  - COUGH [None]
  - CHEST X-RAY ABNORMAL [None]
  - COMPUTERISED TOMOGRAM ABNORMAL [None]
  - NASOPHARYNGITIS [None]
  - WHEEZING [None]
